FAERS Safety Report 5721897-9 (Version None)
Quarter: 2008Q2

REPORT INFORMATION
  Report Type: 
  Country: None (occurrence: None)
  Receive Date: 20080429
  Receipt Date: 20080417
  Transmission Date: 20081010
  Serious: Yes (Other)
  Sender: FDA-Public Use
  Company Number: GB-PFIZER INC-2008035306

PATIENT
  Age: 51 Year
  Sex: Male
  Weight: 68.6 kg

DRUGS (10)
  1. CHAMPIX [Suspect]
     Indication: SMOKING CESSATION THERAPY
     Route: 048
  2. CETIRIZINE HCL [Concomitant]
  3. CLOPIDOGREL [Concomitant]
     Indication: CORONARY ARTERY DISEASE
  4. ACETAMINOPHEN W/ CODEINE [Concomitant]
  5. GLYCERYL TRINITRATE [Concomitant]
     Indication: ANGINA PECTORIS
  6. LANSOPRAZOLE [Concomitant]
  7. LOSARTAN POTASSIUM [Concomitant]
  8. NIFEDIPINE [Concomitant]
     Indication: ANGINA PECTORIS
  9. SILDENAFIL CITRATE [Concomitant]
     Indication: HYPERTENSION
  10. SIMVASTATIN [Concomitant]
     Indication: HYPERCHOLESTEROLAEMIA

REACTIONS (1)
  - BLOOD GLUCOSE INCREASED [None]
